FAERS Safety Report 19288964 (Version 9)
Quarter: 2023Q1

REPORT INFORMATION
  Report Type: Spontaneous
  Country: GB (occurrence: GB)
  Receive Date: 20210522
  Receipt Date: 20230124
  Transmission Date: 20230418
  Serious: Yes (Hospitalization, Other)
  Sender: FDA-Public Use
  Company Number: NVSC2019GB072056

PATIENT
  Age: 7 Year
  Sex: Male

DRUGS (96)
  1. BISOPROLOL [Suspect]
     Active Substance: BISOPROLOL
     Indication: Product used for unknown indication
     Dosage: 2.5 MG, QD  (DRUG TAKEN BEYOND, EXPIRY DATE, MEDICATION ERROR, MISUSE, OFF LABEL U)
     Route: 065
  2. BISOPROLOL [Suspect]
     Active Substance: BISOPROLOL
     Dosage: 2.5 MG, QD (DRUG TAKEN BEYOND, EXPIRY DATE, MEDICATION ERROR, MISUSE, OFF LABEL U)
     Route: 065
  3. BISOPROLOL [Suspect]
     Active Substance: BISOPROLOL
     Dosage: 2.5 MG, QD (DRUG TAKEN BEYOND, EXPIRY DATE, MEDICATION ERROR, MISUSE, OFF LABEL U)
     Route: 065
  4. BISOPROLOL [Suspect]
     Active Substance: BISOPROLOL
     Dosage: 2.5 MG, QD
     Route: 065
  5. BISOPROLOL [Suspect]
     Active Substance: BISOPROLOL
     Dosage: 2.5 MG (DRUG TAKEN BEYOND, EXPIRY DATE, MEDICATION ERROR, MISUSE, OFF LABEL U)
     Route: 065
  6. BISOPROLOL [Suspect]
     Active Substance: BISOPROLOL
     Dosage: 2.5 MG, QD
     Route: 065
  7. BISOPROLOL [Suspect]
     Active Substance: BISOPROLOL
     Dosage: 2.5 MG, QD
     Route: 065
  8. BISOPROLOL [Suspect]
     Active Substance: BISOPROLOL
     Dosage: 2.5 MG (DRUG TAKEN BEYOND, EXPIRY DATE, MEDICATION ERROR, MISUSE, OFF LABEL U)
     Route: 065
  9. BISOPROLOL [Suspect]
     Active Substance: BISOPROLOL
     Dosage: 2.5 MG, QD
     Route: 065
  10. TRAMADOL [Suspect]
     Active Substance: TRAMADOL
     Indication: Product used for unknown indication
     Dosage: UNK
     Route: 065
  11. TRAMADOL [Suspect]
     Active Substance: TRAMADOL
     Dosage: 50 MG, QD
     Route: 065
  12. TRAMADOL [Suspect]
     Active Substance: TRAMADOL
     Dosage: UNK (MEDICATION ERROR, MISUSEUNK, STRENGTH: 100 MG)
     Route: 065
  13. TRAMADOL [Suspect]
     Active Substance: TRAMADOL
     Dosage: 100 MG, QD
     Route: 065
  14. TRAMADOL [Suspect]
     Active Substance: TRAMADOL
     Dosage: UNK  (MEDICATION ERROR, MISUSEUNK, STRENGTH: 100 MG)
     Route: 065
  15. TRAMADOL [Suspect]
     Active Substance: TRAMADOL
     Dosage: UNK  (MEDICATION ERROR, MISUSEUNK, STRENGTH: 100 MG)
     Route: 065
  16. TRAMADOL [Suspect]
     Active Substance: TRAMADOL
     Dosage: 100 MG, QD
     Route: 065
  17. TRAMADOL [Suspect]
     Active Substance: TRAMADOL
     Dosage: UNK (ONCE A DAY,ADDITIONAL INFO MEDICATION ERROR)
     Route: 065
  18. TRAMADOL [Suspect]
     Active Substance: TRAMADOL
     Dosage: 50 MG (STRENGTH : 50 MG, DRUG TAKEN BEYOND EXPIRY DATE, MEDICATION ERROR, MISUSE)
     Route: 065
  19. TRAMADOL [Suspect]
     Active Substance: TRAMADOL
     Dosage: 100 MG (MEDICATION ERROR)
     Route: 065
  20. TRAMADOL [Suspect]
     Active Substance: TRAMADOL
     Dosage: 100 MG, QD
     Route: 065
  21. TRAMADOL [Suspect]
     Active Substance: TRAMADOL
     Dosage: 50 MG (STRENGTH : 50 MG)
     Route: 065
  22. TRAMADOL [Suspect]
     Active Substance: TRAMADOL
     Dosage: 100 MG (MEDICATION ERROR)
     Route: 065
  23. TRAMADOL [Suspect]
     Active Substance: TRAMADOL
     Dosage: 100 MG, QD
     Route: 065
  24. TRAMADOL [Suspect]
     Active Substance: TRAMADOL
     Dosage: UNK
     Route: 065
  25. TRAMADOL [Suspect]
     Active Substance: TRAMADOL
     Dosage: 50 MG, QD
     Route: 065
  26. TRAMADOL [Suspect]
     Active Substance: TRAMADOL
     Dosage: 100 MG
     Route: 065
  27. TRAMADOL [Suspect]
     Active Substance: TRAMADOL
     Dosage: 50 MG, QD (STRENGTH: 100 MG)
     Route: 065
  28. TRAMADOL [Suspect]
     Active Substance: TRAMADOL
     Dosage: 100 MG, QD
     Route: 065
  29. TRAMADOL [Suspect]
     Active Substance: TRAMADOL
     Dosage: UNK (ONCE A DAY,ADDITIONAL INFO MEDICATION ERROR)
     Route: 065
  30. TRAMADOL [Suspect]
     Active Substance: TRAMADOL
     Dosage: 50 MG (STRENGTH : 100 MG)
     Route: 065
  31. TRAMADOL [Suspect]
     Active Substance: TRAMADOL
     Dosage: 50 MG (STRENGTH : 50 MG) (DRUG TAKEN BEYOND EXPIRY DATE, MEDICATION ERROR, MISUSE)
     Route: 065
  32. TRAMADOL [Suspect]
     Active Substance: TRAMADOL
     Dosage: 100 MG (MEDICATION ERROR)
     Route: 065
  33. TRAMADOL [Suspect]
     Active Substance: TRAMADOL
     Dosage: UNK
     Route: 065
  34. TRAMADOL [Suspect]
     Active Substance: TRAMADOL
     Dosage: 100 MG, QD
     Route: 065
  35. TRAMADOL [Suspect]
     Active Substance: TRAMADOL
     Dosage: 100 MG, QD
     Route: 065
  36. TRAMADOL [Suspect]
     Active Substance: TRAMADOL
     Dosage: 100 MG, QD
     Route: 065
  37. TRAMADOL [Suspect]
     Active Substance: TRAMADOL
     Dosage: UNK (ONCE A DAY,ADDITIONAL INFO MEDICATION ERROR)
     Route: 065
  38. TRAMADOL [Suspect]
     Active Substance: TRAMADOL
     Dosage: 50 MG, QD
     Route: 065
  39. TRAMADOL [Suspect]
     Active Substance: TRAMADOL
     Dosage: 50 MG (STRENGTH : 100 MG)
     Route: 065
  40. LANSOPRAZOLE [Suspect]
     Active Substance: LANSOPRAZOLE
     Indication: Gastrooesophageal reflux disease
     Dosage: 15 MG, QD
     Route: 065
  41. LANSOPRAZOLE [Suspect]
     Active Substance: LANSOPRAZOLE
     Dosage: 15 MG, QD
     Route: 065
  42. LANSOPRAZOLE [Suspect]
     Active Substance: LANSOPRAZOLE
     Dosage: 2.5 MG
     Route: 065
  43. LANSOPRAZOLE [Suspect]
     Active Substance: LANSOPRAZOLE
     Dosage: 15 MG, QD
     Route: 065
  44. LANSOPRAZOLE [Suspect]
     Active Substance: LANSOPRAZOLE
     Dosage: 2.5 MG
     Route: 065
  45. LANSOPRAZOLE [Suspect]
     Active Substance: LANSOPRAZOLE
     Dosage: 15 MG (STRENGTH: 15 MG)
     Route: 065
  46. LANSOPRAZOLE [Suspect]
     Active Substance: LANSOPRAZOLE
     Dosage: 2.5 MG
     Route: 065
  47. LANSOPRAZOLE [Suspect]
     Active Substance: LANSOPRAZOLE
     Dosage: 2.5 MG, QD
     Route: 065
  48. LANSOPRAZOLE [Suspect]
     Active Substance: LANSOPRAZOLE
     Dosage: 15 MG (STRENGTH: 15 MG,ADDITIONAL INFO: DRUG TAKEN BEYOND EXPIRY DATE, MEDICATION ERROR, M)
     Route: 065
  49. LANSOPRAZOLE [Suspect]
     Active Substance: LANSOPRAZOLE
     Dosage: 2.5 MG
     Route: 065
  50. LANSOPRAZOLE [Suspect]
     Active Substance: LANSOPRAZOLE
     Dosage: 2.5 MG
     Route: 065
  51. LANSOPRAZOLE [Suspect]
     Active Substance: LANSOPRAZOLE
     Dosage: 15 MG (STRENGTH: 15 MG)
     Route: 065
  52. ALFUZOSIN HYDROCHLORIDE [Suspect]
     Active Substance: ALFUZOSIN HYDROCHLORIDE
     Indication: Product used for unknown indication
     Dosage: 10 MG, QD
     Route: 065
  53. ALFUZOSIN HYDROCHLORIDE [Suspect]
     Active Substance: ALFUZOSIN HYDROCHLORIDE
     Dosage: 10 MG
     Route: 065
  54. ALFUZOSIN HYDROCHLORIDE [Suspect]
     Active Substance: ALFUZOSIN HYDROCHLORIDE
     Dosage: 1 DOSAGE FORM, QD
     Route: 065
  55. ALFUZOSIN HYDROCHLORIDE [Suspect]
     Active Substance: ALFUZOSIN HYDROCHLORIDE
     Dosage: 10 MG, QD
     Route: 065
  56. ALFUZOSIN HYDROCHLORIDE [Suspect]
     Active Substance: ALFUZOSIN HYDROCHLORIDE
     Dosage: 1 DOSAGE FORM, QD
     Route: 065
  57. ALFUZOSIN HYDROCHLORIDE [Suspect]
     Active Substance: ALFUZOSIN HYDROCHLORIDE
     Dosage: 10 MG, QD
     Route: 065
  58. ALFUZOSIN HYDROCHLORIDE [Suspect]
     Active Substance: ALFUZOSIN HYDROCHLORIDE
     Dosage: 10 MG (STRENGTH: 10 MG)
     Route: 065
  59. ALFUZOSIN HYDROCHLORIDE [Suspect]
     Active Substance: ALFUZOSIN HYDROCHLORIDE
     Dosage: 10 MG (STRENGTH: 10 MG)
     Route: 065
  60. ALFUZOSIN HYDROCHLORIDE [Suspect]
     Active Substance: ALFUZOSIN HYDROCHLORIDE
     Dosage: 1 DOSAGE FORM, QD
     Route: 065
  61. ALFUZOSIN HYDROCHLORIDE [Suspect]
     Active Substance: ALFUZOSIN HYDROCHLORIDE
     Dosage: 10 MG (STRENGTH: 10 MG)
     Route: 065
  62. ALFUZOSIN HYDROCHLORIDE [Suspect]
     Active Substance: ALFUZOSIN HYDROCHLORIDE
     Dosage: 10 MG, QD
     Route: 065
  63. ALFUZOSIN HYDROCHLORIDE [Suspect]
     Active Substance: ALFUZOSIN HYDROCHLORIDE
     Dosage: 10 MG, QD
     Route: 065
  64. DUTASTERIDE [Suspect]
     Active Substance: DUTASTERIDE
     Indication: Product used for unknown indication
     Dosage: 500 UG, QD
     Route: 065
  65. DUTASTERIDE [Suspect]
     Active Substance: DUTASTERIDE
     Dosage: 500 UG, QD
     Route: 065
  66. DUTASTERIDE [Suspect]
     Active Substance: DUTASTERIDE
     Dosage: 500 UG
     Route: 065
  67. DUTASTERIDE [Suspect]
     Active Substance: DUTASTERIDE
     Dosage: 500 UG
     Route: 065
  68. DUTASTERIDE [Suspect]
     Active Substance: DUTASTERIDE
     Dosage: 500 UG, QD
     Route: 065
  69. DUTASTERIDE [Suspect]
     Active Substance: DUTASTERIDE
     Dosage: 500 UG, QD
     Route: 065
  70. DUTASTERIDE [Suspect]
     Active Substance: DUTASTERIDE
     Dosage: 500 UG, QD
     Route: 065
  71. DUTASTERIDE [Suspect]
     Active Substance: DUTASTERIDE
     Dosage: 500 UG, QD
     Route: 065
  72. DUTASTERIDE [Suspect]
     Active Substance: DUTASTERIDE
     Dosage: 500 UG, QD
     Route: 065
  73. DUTASTERIDE [Suspect]
     Active Substance: DUTASTERIDE
     Dosage: UNK (STRENGTH: 500 MICROGRAM DOSE: 500 QD, DRUG TAKEN BEYOND EXPIRY DATE, MEDICATION ERROR, MISUSE,
     Route: 065
  74. DUTASTERIDE [Suspect]
     Active Substance: DUTASTERIDE
     Dosage: 500 UG, QD
     Route: 065
  75. DUTASTERIDE [Suspect]
     Active Substance: DUTASTERIDE
     Dosage: 500 UG, QD
     Route: 065
  76. DUTASTERIDE [Suspect]
     Active Substance: DUTASTERIDE
     Dosage: 500 UG, QD
     Route: 065
  77. DUTASTERIDE [Suspect]
     Active Substance: DUTASTERIDE
     Dosage: 500 UG, QD
     Route: 065
  78. DAPTOMYCIN [Suspect]
     Active Substance: DAPTOMYCIN
     Indication: Device related infection
     Dosage: UNK
     Route: 042
  79. DAPTOMYCIN [Suspect]
     Active Substance: DAPTOMYCIN
     Indication: Bacteraemia
     Dosage: UNK
     Route: 065
  80. DAPTOMYCIN [Suspect]
     Active Substance: DAPTOMYCIN
     Dosage: UNK
     Route: 065
  81. DAPTOMYCIN [Suspect]
     Active Substance: DAPTOMYCIN
     Dosage: 120 DOSAGE FORM
     Route: 065
  82. VANCOMYCIN [Suspect]
     Active Substance: VANCOMYCIN
     Indication: Device related infection
     Dosage: UNK
     Route: 042
  83. VANCOMYCIN [Suspect]
     Active Substance: VANCOMYCIN
     Indication: Bacteraemia
     Dosage: UNK
     Route: 065
  84. ALFUZOSIN [Suspect]
     Active Substance: ALFUZOSIN
     Indication: Product used for unknown indication
     Dosage: 10 MG, QD (10 MILLIGRAM, STRENGTH: 10 MG, 10 MG, QD,ADDITIONAL)
     Route: 065
  85. ALFUZOSIN [Suspect]
     Active Substance: ALFUZOSIN
     Dosage: UNK (STRENGTH 10 MG )
     Route: 065
  86. ALFUZOSIN [Suspect]
     Active Substance: ALFUZOSIN
     Dosage: 10 MG, QD (10 MILLIGRAM, STRENGTH: 10 MG)
     Route: 065
  87. ALFUZOSIN [Suspect]
     Active Substance: ALFUZOSIN
     Dosage: 1 DOSAGE FORM, QD
     Route: 065
  88. ALFUZOSIN [Suspect]
     Active Substance: ALFUZOSIN
     Dosage: 10 MG, QD (10 MILLIGRAM, STRENGTH: 10 MG, 10 MG, QD,ADDITIONAL)
     Route: 065
  89. ALFUZOSIN [Suspect]
     Active Substance: ALFUZOSIN
     Dosage: 10 MG, QD, DRUG TAKEN BEYOND EXPIRY DATE, MEDICATION ERROR, MISUSE, OFF LABEL USE
     Route: 065
  90. ALFUZOSIN [Suspect]
     Active Substance: ALFUZOSIN
     Dosage: 10 MG, QD, DRUG TAKEN BEYOND EXPIRY DATE, MEDICATION ERROR, MISUSE, OFF LABEL USE
     Route: 065
  91. ALFUZOSIN [Suspect]
     Active Substance: ALFUZOSIN
     Dosage: 10 MG, QD
     Route: 065
  92. ALFUZOSIN [Suspect]
     Active Substance: ALFUZOSIN
     Dosage: 10 MG
     Route: 065
  93. ALFUZOSIN [Suspect]
     Active Substance: ALFUZOSIN
     Dosage: 10 MG
     Route: 065
  94. ALFUZOSIN [Suspect]
     Active Substance: ALFUZOSIN
     Dosage: 10 MG, QD (10 MILLIGRAM, STRENGTH: 10 MG)
     Route: 065
  95. ALFUZOSIN [Suspect]
     Active Substance: ALFUZOSIN
     Dosage: 1 DOSAGE FORM, QD
     Route: 065
  96. LINEZOLID [Concomitant]
     Active Substance: LINEZOLID
     Indication: Product used for unknown indication
     Dosage: UNK
     Route: 065

REACTIONS (18)
  - Malaise [Unknown]
  - Lower respiratory tract infection [Unknown]
  - Antimicrobial susceptibility test resistant [Unknown]
  - Minimum inhibitory concentration [Unknown]
  - Malaise [Unknown]
  - Product storage error [Unknown]
  - Wrong patient received product [Unknown]
  - Wrong product administered [Unknown]
  - Drug dispensed to wrong patient [Unknown]
  - Product administration error [Unknown]
  - Expired product administered [Unknown]
  - Product dispensing error [Unknown]
  - Wrong patient received product [Unknown]
  - Intentional product misuse [Unknown]
  - Off label use [Unknown]
  - Drug ineffective for unapproved indication [Unknown]
  - Therapy non-responder [Unknown]
  - Therapeutic response delayed [Unknown]
